FAERS Safety Report 6533655-6 (Version None)
Quarter: 2010Q1

REPORT INFORMATION
  Report Type: 
  Country: None (occurrence: None)
  Receive Date: 20100108
  Receipt Date: 20100108
  Transmission Date: 20100710
  Serious: Yes (Other)
  Sender: FDA-Public Use
  Company Number: None

PATIENT
  Sex: Female
  Weight: 56.7 kg

DRUGS (1)
  1. METFORMIN ER 500MG TEVA [Suspect]
     Indication: DIABETES MELLITUS
     Dosage: 500MG 2-3 TABLETS DAILY PO
     Route: 048
     Dates: start: 20091223, end: 20091230

REACTIONS (3)
  - BLOOD GLUCOSE INCREASED [None]
  - MEDICATION RESIDUE [None]
  - PRODUCT SUBSTITUTION ISSUE [None]
